FAERS Safety Report 20205819 (Version 8)
Quarter: 2023Q1

REPORT INFORMATION
  Report Type: Spontaneous
  Country: FR (occurrence: FR)
  Receive Date: 20211220
  Receipt Date: 20230203
  Transmission Date: 20230417
  Serious: Yes (Other)
  Sender: FDA-Public Use
  Company Number: None

PATIENT
  Age: 28 Year
  Sex: Female

DRUGS (10)
  1. CISPLATIN [Interacting]
     Active Substance: CISPLATIN
     Indication: Adenocarcinoma
     Dosage: 100 MILLIGRAM/SQ. METER, QD, C1J1
     Route: 042
     Dates: start: 20211014, end: 20211014
  2. CISPLATIN [Interacting]
     Active Substance: CISPLATIN
     Dosage: 100 MILLIGRAM/SQ. METER, 100 MG/M2 (D1)
     Route: 065
  3. CISPLATIN [Interacting]
     Active Substance: CISPLATIN
     Dosage: 100 MILLIGRAM PER CUBIC METRE
     Route: 065
  4. NEULASTA [Interacting]
     Active Substance: PEGFILGRASTIM
     Indication: Neutropenia
     Dosage: 6 MILLIGRAM, TOTAL
     Route: 058
     Dates: start: 20211017, end: 20211017
  5. NEULASTA [Interacting]
     Active Substance: PEGFILGRASTIM
     Indication: Adenocarcinoma
     Dosage: 6 MILLIGRAM
     Route: 065
  6. NEULASTA [Interacting]
     Active Substance: PEGFILGRASTIM
     Dosage: UNK
     Route: 065
  7. ETOPOSIDE [Concomitant]
     Active Substance: ETOPOSIDE
     Indication: Adenocarcinoma
     Dosage: 100 MILLIGRAM/SQ. METER, QD, C1J1-J2-J3
     Route: 042
     Dates: start: 20211014, end: 20211016
  8. ETOPOSIDE [Concomitant]
     Active Substance: ETOPOSIDE
     Dosage: 100 MILLIGRAM/SQ. METER, 100 MG/M2 (D1, D2, D3)
     Route: 065
  9. ETOPOSIDE [Concomitant]
     Active Substance: ETOPOSIDE
     Dosage: 300 MG/SQ.METER, CYCLICAL,100 MG/M2 (D1, D2, D3)
     Route: 065
  10. ETOPOSIDE [Concomitant]
     Active Substance: ETOPOSIDE
     Dosage: UNK
     Route: 065

REACTIONS (4)
  - Hyperleukocytosis [Unknown]
  - Drug interaction [Unknown]
  - Extremity necrosis [Unknown]
  - Condition aggravated [Recovering/Resolving]

NARRATIVE: CASE EVENT DATE: 20211018
